FAERS Safety Report 13663517 (Version 2)
Quarter: 2017Q3

REPORT INFORMATION
  Report Type: Spontaneous
  Country: US (occurrence: US)
  Receive Date: 20170619
  Receipt Date: 20170829
  Transmission Date: 20171127
  Serious: No
  Sender: FDA-Public Use
  Company Number: US-PFIZER INC-2017260840

PATIENT
  Age: 68 Year
  Sex: Female
  Weight: 58.97 kg

DRUGS (5)
  1. IBRANCE [Suspect]
     Active Substance: PALBOCICLIB
     Dosage: 100 MG, UNK
  2. TAMOXIFEN [Concomitant]
     Active Substance: TAMOXIFEN
     Dosage: 20 MG, 1X/DAY
     Dates: start: 201706
  3. FASLODEX [Concomitant]
     Active Substance: FULVESTRANT
     Indication: BREAST CANCER
     Dosage: 2 SHOTS ONCE A MONTH
     Dates: start: 2014, end: 201705
  4. IBRANCE [Suspect]
     Active Substance: PALBOCICLIB
     Dosage: 75 MG, ALTERNATE DAY (75MG, 1 CAPSULE EVERY OTHER DAY)
     Dates: end: 20170529
  5. IBRANCE [Suspect]
     Active Substance: PALBOCICLIB
     Indication: NEOPLASM MALIGNANT
     Dosage: 125 MG, 1 TAB ONCE A DAY
     Dates: start: 2015

REACTIONS (2)
  - Neoplasm progression [Unknown]
  - Immune system disorder [Recovering/Resolving]

NARRATIVE: CASE EVENT DATE: 2015
